FAERS Safety Report 5047805-4 (Version None)
Quarter: 2006Q3

REPORT INFORMATION
  Report Type: 
  Country: None (occurrence: None)
  Receive Date: 20060710
  Receipt Date: 20060710
  Transmission Date: 20061208
  Serious: Yes (Death)
  Sender: FDA-Public Use
  Company Number: None

PATIENT
  Age: 55 Year
  Sex: Male
  Weight: 111.5849 kg

DRUGS (2)
  1. ARAVA [Suspect]
     Indication: PSORIATIC ARTHROPATHY
     Dosage: 20 MG EVERY OTHER DAY PO
     Route: 048
  2. METHOTREXATE [Suspect]
     Indication: PSORIATIC ARTHROPATHY
     Dosage: 25 MG EVERY DAY PO
     Route: 048

REACTIONS (15)
  - ACUTE RESPIRATORY DISTRESS SYNDROME [None]
  - ANAEMIA [None]
  - DECREASED APPETITE [None]
  - FAECES DISCOLOURED [None]
  - HAEMODIALYSIS [None]
  - HEPATOTOXICITY [None]
  - HYPOXIA [None]
  - JAUNDICE [None]
  - LEUKOPENIA [None]
  - ORAL INTAKE REDUCED [None]
  - PALLOR [None]
  - PNEUMONIA [None]
  - PNEUMONIA LEGIONELLA [None]
  - REFUSAL OF TREATMENT BY RELATIVE [None]
  - RENAL FAILURE ACUTE [None]
